FAERS Safety Report 8492468-9 (Version None)
Quarter: 2012Q3

REPORT INFORMATION
  Report Type: 
  Country: None (occurrence: None)
  Receive Date: 20120706
  Receipt Date: 20120614
  Transmission Date: 20120928
  Serious: Yes (Other)
  Sender: FDA-Public Use
  Company Number: US-ROCHE-1083800

PATIENT
  Sex: Female

DRUGS (20)
  1. OMEPRAZOLE [Concomitant]
  2. GLUCOSAMINE [Concomitant]
  3. ASPIRIN [Concomitant]
  4. LEVOXYL [Concomitant]
  5. SALMON OIL [Concomitant]
  6. CINNAMON [Concomitant]
  7. PROPYLENE GLYCOL [Concomitant]
  8. BONIVA [Suspect]
     Indication: PRODUCT USED FOR UNKNOWN INDICATION
  9. DILTIAZEM HYDROCHOLORIDE [Concomitant]
  10. CHONDROITIN [Concomitant]
  11. ARIMIDEX [Suspect]
     Indication: PRODUCT USED FOR UNKNOWN INDICATION
  12. SINGULAIR [Concomitant]
  13. LORAZEPAM [Concomitant]
  14. VITAMIN D [Concomitant]
  15. LUNESTA [Concomitant]
  16. ASCORBIC ACID [Concomitant]
  17. CHROMIUM PICOLINATE [Concomitant]
  18. CITRACAL [Concomitant]
  19. DETROL LA [Concomitant]
  20. CLONIDINE [Concomitant]

REACTIONS (5)
  - GASTRIC DISORDER [None]
  - VITAMIN D DECREASED [None]
  - GASTROOESOPHAGEAL REFLUX DISEASE [None]
  - DIARRHOEA [None]
  - MYOCARDIAL INFARCTION [None]
